FAERS Safety Report 16271484 (Version 2)
Quarter: 2019Q2

REPORT INFORMATION
  Report Type: Spontaneous
  Country: ES (occurrence: ES)
  Receive Date: 20190503
  Receipt Date: 20190523
  Transmission Date: 20190711
  Serious: Yes (Hospitalization)
  Sender: FDA-Public Use
  Company Number: ES-TEVA-2019-ES-1044190

PATIENT
  Age: 91 Year
  Sex: Female

DRUGS (3)
  1. HIDROCLOROTIAZIDA (1343A) [Suspect]
     Active Substance: HYDROCHLOROTHIAZIDE
     Dates: start: 20131010, end: 2018
  2. DIGOXINA [Suspect]
     Active Substance: DIGOXIN
     Dates: start: 20140727, end: 2018
  3. VALSARTAN. [Suspect]
     Active Substance: VALSARTAN
     Dates: start: 20131010, end: 2018

REACTIONS (2)
  - Hyponatraemia [Recovered/Resolved]
  - Atrial fibrillation [Recovered/Resolved]

NARRATIVE: CASE EVENT DATE: 20181129
